FAERS Safety Report 21784528 (Version 3)
Quarter: 2023Q1

REPORT INFORMATION
  Report Type: Report from Study
  Country: US (occurrence: US)
  Receive Date: 20221227
  Receipt Date: 20230118
  Transmission Date: 20230418
  Serious: Yes (Hospitalization)
  Sender: FDA-Public Use
  Company Number: US-ALNYLAM PHARMACEUTICALS, INC.-ALN-2022-004571

PATIENT

DRUGS (2)
  1. GIVLAARI [Suspect]
     Active Substance: GIVOSIRAN SODIUM
     Indication: Product used for unknown indication
     Dosage: 155 MILLIGRAM (2.5 MG/KG), MONTHLY (189 MG/ML VIALS)
     Route: 058
     Dates: start: 20210920
  2. GIVLAARI [Suspect]
     Active Substance: GIVOSIRAN SODIUM
     Dosage: 155 MILLIGRAM, MONTHLY
     Route: 058
     Dates: start: 20210920

REACTIONS (6)
  - Porphyria acute [Not Recovered/Not Resolved]
  - Blood pressure increased [Unknown]
  - Product dose omission issue [Not Recovered/Not Resolved]
  - Pyrexia [Unknown]
  - Respiratory disorder [Unknown]
  - COVID-19 [Recovering/Resolving]

NARRATIVE: CASE EVENT DATE: 20221211
